FAERS Safety Report 6549257-1 (Version None)
Quarter: 2010Q1

REPORT INFORMATION
  Report Type: 
  Country: None (occurrence: None)
  Receive Date: 20100119
  Receipt Date: 20100104
  Transmission Date: 20100710
  Serious: Yes (Hospitalization, Other)
  Sender: FDA-Public Use
  Company Number: 2009AC000361

PATIENT
  Age: 75 Year
  Sex: Female

DRUGS (66)
  1. DIGOXIN [Suspect]
     Dosage: 250 MCG; PO
     Route: 048
     Dates: start: 20080124
  2. CIPRO [Concomitant]
  3. DARVOCET [Concomitant]
  4. ASPIRIN [Concomitant]
  5. LOPRESSOR [Concomitant]
  6. COUMADIN [Concomitant]
  7. NYSTATIN [Concomitant]
  8. PRILOSEC [Concomitant]
  9. LIPITOR [Concomitant]
  10. REGLAN [Concomitant]
  11. SYNTHROID [Concomitant]
  12. ASPIRIN [Concomitant]
  13. CELEXA [Concomitant]
  14. MIRALAX [Concomitant]
  15. CLARITIN [Concomitant]
  16. LOPRESSOR [Concomitant]
  17. MUCINEX [Concomitant]
  18. REGLAN [Concomitant]
  19. VALIUM [Concomitant]
  20. LORTAB [Concomitant]
  21. LIPITOR [Concomitant]
  22. NEXIUM [Concomitant]
  23. CORDARONE [Concomitant]
  24. BACTRIM [Concomitant]
  25. DIAZEPAM [Concomitant]
  26. DETROL [Concomitant]
  27. DILTIAZEM [Concomitant]
  28. ACETAMINOPHEN [Concomitant]
  29. HYDROCODONE [Concomitant]
  30. ZINC [Concomitant]
  31. ASCORBIC ACID [Concomitant]
  32. LIPITOR [Concomitant]
  33. OYST-CAL [Concomitant]
  34. LEVOTHYROXINE SODIUM [Concomitant]
  35. PRILOSEC [Concomitant]
  36. CEPHALEXIN [Concomitant]
  37. LEVAQUIN [Concomitant]
  38. PROMETHAZINE [Concomitant]
  39. NITROFURATOIN [Concomitant]
  40. SENNA-LAX [Concomitant]
  41. MULTI-VITAMINS [Concomitant]
  42. ZOSYN [Concomitant]
  43. MUCINEX [Concomitant]
  44. POTASSIUM [Concomitant]
  45. DUONEB [Concomitant]
  46. MAGNESIUM [Concomitant]
  47. LISINOPRIL [Concomitant]
  48. PROPOXY-N [Concomitant]
  49. DICLOXACILLIN [Concomitant]
  50. LACTULOSE [Concomitant]
  51. NYSTATIN [Concomitant]
  52. METOCLOPRAMIDE [Concomitant]
  53. SERTRALINE HCL [Concomitant]
  54. NITROGLYCERIN [Concomitant]
  55. ALMACONE [Concomitant]
  56. LOPERAMIDE [Concomitant]
  57. NAPROXEN [Concomitant]
  58. JANTOVEN [Concomitant]
  59. AMIODARONE HCL [Concomitant]
  60. ASPIRIN [Concomitant]
  61. PANTOPRAZOLE [Concomitant]
  62. DOCUSATE [Concomitant]
  63. ONDANSETRON [Concomitant]
  64. FUROSEMIDE [Concomitant]
  65. RISPERDAL [Concomitant]
  66. LEVAQUIN [Concomitant]

REACTIONS (34)
  - ACUTE MYOCARDIAL INFARCTION [None]
  - ANAEMIA [None]
  - ANXIETY [None]
  - ATRIAL FIBRILLATION [None]
  - ATRIOVENTRICULAR BLOCK COMPLETE [None]
  - BLEPHARITIS [None]
  - BRADYCARDIA [None]
  - CARDIAC ARREST [None]
  - CARDIAC FAILURE CONGESTIVE [None]
  - CHRONIC OBSTRUCTIVE PULMONARY DISEASE [None]
  - CONJUNCTIVITIS [None]
  - CONSTIPATION [None]
  - CORONARY ARTERY DISEASE [None]
  - DYSLIPIDAEMIA [None]
  - EMOTIONAL DISTRESS [None]
  - FEAR [None]
  - FEMUR FRACTURE [None]
  - FUNGAL OESOPHAGITIS [None]
  - GASTRITIS [None]
  - GASTROINTESTINAL HAEMORRHAGE [None]
  - GASTROOESOPHAGEAL REFLUX DISEASE [None]
  - HYPERTENSION [None]
  - HYPOTHYROIDISM [None]
  - JOINT DISLOCATION [None]
  - KYPHOSIS [None]
  - MENTAL STATUS CHANGES [None]
  - MULTIPLE INJURIES [None]
  - MUSCULAR WEAKNESS [None]
  - OSTEOPOROSIS [None]
  - PAIN [None]
  - PAIN IN EXTREMITY [None]
  - THERAPEUTIC AGENT TOXICITY [None]
  - THROAT CANCER [None]
  - URINARY INCONTINENCE [None]
